FAERS Safety Report 11124386 (Version 1)
Quarter: 2015Q2

REPORT INFORMATION
  Report Type: Spontaneous
  Country: US (occurrence: None)
  Receive Date: 20150518
  Receipt Date: 20150518
  Transmission Date: 20150821
  Serious: Yes (Other)
  Sender: FDA-Public Use
  Company Number: ADR-2015-00959

PATIENT
  Age: 66 Year
  Sex: Female

DRUGS (2)
  1. OTHER MEDICATIONS UNKNOWN [Suspect]
     Active Substance: UNSPECIFIED INGREDIENT
  2. LIORESAL [Suspect]
     Active Substance: BACLOFEN
     Indication: MUSCLE SPASTICITY

REACTIONS (6)
  - Asthenia [None]
  - Device dislocation [None]
  - Dementia [None]
  - Fall [None]
  - Dizziness [None]
  - Incorrect route of drug administration [None]
